FAERS Safety Report 10838571 (Version 1)
Quarter: 2015Q1

REPORT INFORMATION
  Report Type: Spontaneous
  Country: US (occurrence: US)
  Receive Date: 20150219
  Receipt Date: 20150219
  Transmission Date: 20150721
  Serious: No
  Sender: FDA-Public Use
  Company Number: US-ABBVIE-14P-163-1228108-00

PATIENT
  Age: 37 Year
  Sex: Male
  Weight: 107.14 kg

DRUGS (2)
  1. HUMIRA [Suspect]
     Active Substance: ADALIMUMAB
     Indication: PSORIASIS
     Dates: start: 201401, end: 201401
  2. HUMIRA [Suspect]
     Active Substance: ADALIMUMAB
     Dates: start: 201401

REACTIONS (5)
  - Wrong technique in drug usage process [Unknown]
  - Injection site pain [Recovered/Resolved]
  - Incorrect dose administered [Unknown]
  - Injection site haemorrhage [Recovered/Resolved]
  - Injection site pain [Recovered/Resolved]

NARRATIVE: CASE EVENT DATE: 201401
